FAERS Safety Report 7434795-X (Version None)
Quarter: 2011Q2

REPORT INFORMATION
  Report Type: 
  Country: None (occurrence: None)
  Receive Date: 20110425
  Receipt Date: 20110418
  Transmission Date: 20111010
  Serious: Yes (Death, Other)
  Sender: FDA-Public Use
  Company Number: US-ASTRAZENECA-2011SE21818

PATIENT
  Age: 24 Year
  Sex: Male

DRUGS (1)
  1. PROPOFOL [Suspect]
     Route: 042

REACTIONS (2)
  - HYPERTHERMIA [None]
  - PROPOFOL INFUSION SYNDROME [None]
